FAERS Safety Report 6706316-8 (Version None)
Quarter: 2010Q2

REPORT INFORMATION
  Report Type: 
  Country: None (occurrence: None)
  Receive Date: 20100503
  Receipt Date: 20100422
  Transmission Date: 20101027
  Serious: Yes (Other)
  Sender: FDA-Public Use
  Company Number: US-BAYER-201014626BCC

PATIENT
  Age: 42 Year
  Sex: Female
  Weight: 50 kg

DRUGS (3)
  1. BRONKAID DUAL ACTION CAPLETS [Suspect]
     Indication: WEIGHT DECREASED
     Dosage: SHE TOOK A TOTAL OF 20 BRONKAID DUAL ACTION CAPLETS AND MUCINEX A DAY
     Route: 048
     Dates: start: 20080101
  2. MUCINEX [Concomitant]
     Dosage: SHE TOOK A TOTAL OF 20 BRONKAID DUAL ACTION CAPLETS AND MUCINEX A DAY
     Route: 065
  3. ANTIDEPRESSANT [Concomitant]
     Route: 065

REACTIONS (1)
  - DRUG SCREEN POSITIVE [None]
